FAERS Safety Report 9826049 (Version 2)
Quarter: 2014Q2

REPORT INFORMATION
  Report Type: Spontaneous
  Country: US (occurrence: None)
  Receive Date: 20131028
  Receipt Date: 20140527
  Transmission Date: 20141212
  Serious: Yes (Hospitalization)
  Sender: FDA-Public Use
  Company Number: 2013US001823

PATIENT
  Age: 42 Year
  Sex: Female

DRUGS (1)
  1. ICLUSIG (PONATINIB) [Suspect]
     Indication: CHRONIC MYELOID LEUKAEMIA
     Route: 048
     Dates: start: 20130612

REACTIONS (3)
  - Full blood count decreased [None]
  - Platelet count decreased [None]
  - Blood product transfusion [None]
